FAERS Safety Report 21985317 (Version 1)
Quarter: 2023Q1

REPORT INFORMATION
  Report Type: Spontaneous
  Country: US (occurrence: None)
  Receive Date: 20230210
  Receipt Date: 20230210
  Transmission Date: 20230417
  Serious: No
  Sender: FDA-Public Use
  Company Number: None

PATIENT

DRUGS (2)
  1. PROTAMINE SULFATE [Suspect]
     Active Substance: PROTAMINE SULFATE
  2. Protamine sulfate injection 50 mg/5 mL [Concomitant]

REACTIONS (1)
  - Anaphylactic reaction [None]
